APPROVED DRUG PRODUCT: LISINOPRIL AND HYDROCHLOROTHIAZIDE
Active Ingredient: HYDROCHLOROTHIAZIDE; LISINOPRIL
Strength: 12.5MG;20MG
Dosage Form/Route: TABLET;ORAL
Application: A075776 | Product #002
Applicant: CHARTWELL RX SCIENCES LLC
Approved: Jul 1, 2002 | RLD: No | RS: No | Type: DISCN